FAERS Safety Report 9097592 (Version 2)
Quarter: 2013Q2

REPORT INFORMATION
  Report Type: Spontaneous
  Country: US (occurrence: US)
  Receive Date: 20130212
  Receipt Date: 20130408
  Transmission Date: 20140414
  Serious: No
  Sender: FDA-Public Use
  Company Number: US-009507513-1302USA003640

PATIENT
  Age: 50 Year
  Sex: Male
  Weight: 116.1 kg

DRUGS (3)
  1. VICTRELIS [Suspect]
     Indication: HEPATITIS C
     Dosage: 800 MG, Q8H
     Route: 048
     Dates: start: 20120929, end: 20130117
  2. PEGINTRON [Suspect]
     Indication: HEPATITIS C
     Dosage: 150/ 0.5 MICROGRAM/ML, QW
     Route: 058
     Dates: start: 20120831, end: 20130117
  3. REBETOL [Suspect]
     Indication: HEPATITIS C
     Dosage: 1200 MG, QD
     Route: 048
     Dates: start: 20120830, end: 20130117

REACTIONS (4)
  - Mood swings [Recovered/Resolved]
  - Affective disorder [Not Recovered/Not Resolved]
  - Mood altered [Recovered/Resolved]
  - Depression [Recovered/Resolved]
